FAERS Safety Report 25271955 (Version 1)
Quarter: 2025Q2

REPORT INFORMATION
  Report Type: Spontaneous
  Country: FI (occurrence: FI)
  Receive Date: 20250506
  Receipt Date: 20250506
  Transmission Date: 20250717
  Serious: Yes (Disabling)
  Sender: ALEXION PHARMACEUTICALS
  Company Number: None

PATIENT
  Age: 73 Year

DRUGS (2)
  1. CALQUENCE [Suspect]
     Active Substance: ACALABRUTINIB
     Indication: Chronic lymphocytic leukaemia
  2. BRUKINSA [Suspect]
     Active Substance: ZANUBRUTINIB
     Indication: Chronic lymphocytic leukaemia
     Dosage: 2 TBL AAMUIN ILLOIN / 2 TABLETS IN THE MORNING AND IN THE EVENING

REACTIONS (7)
  - Uveitis [Not Recovered/Not Resolved]
  - Iritis [Not Recovered/Not Resolved]
  - Vitrectomy [Not Recovered/Not Resolved]
  - Hyphaema [Not Recovered/Not Resolved]
  - Intraocular pressure increased [Not Recovered/Not Resolved]
  - Visual acuity reduced [Not Recovered/Not Resolved]
  - Retinal detachment [Not Recovered/Not Resolved]
